FAERS Safety Report 15105951 (Version 1)
Quarter: 2018Q3

REPORT INFORMATION
  Report Type: Spontaneous
  Country: FR (occurrence: FR)
  Receive Date: 20180704
  Receipt Date: 20180704
  Transmission Date: 20181010
  Serious: Yes (Hospitalization)
  Sender: FDA-Public Use
  Company Number: FR-ACCORD-069213

PATIENT
  Age: 68 Year
  Sex: Male
  Weight: 87.7 kg

DRUGS (13)
  1. ONBREZ BREEZHALER [Concomitant]
     Active Substance: INDACATEROL
  2. ATORVASTATIN [Concomitant]
     Active Substance: ATORVASTATIN
  3. SOLUPRED (PREDNISOLONE SODIUM METAZOATE) [Concomitant]
     Active Substance: PREDNISOLONE SODIUM METAZOATE
  4. LEVOTHYROX [Concomitant]
     Active Substance: LEVOTHYROXINE
  5. DOCETAXEL HOSPIRA [Suspect]
     Active Substance: DOCETAXEL
     Indication: SQUAMOUS CELL CARCINOMA
     Dosage: NOT COMMUNICATED
     Route: 042
     Dates: start: 20180403
  6. FOLIC ACID. [Concomitant]
     Active Substance: FOLIC ACID
  7. ESOMEPRAZOLE/ESOMEPRAZOLE MAGNESIUM/ESOMEPRAZOLE SODIUM [Concomitant]
  8. LUMIGAN [Concomitant]
     Active Substance: BIMATOPROST
  9. CISPLATIN ACCORD [Suspect]
     Active Substance: CISPLATIN
     Indication: SQUAMOUS CELL CARCINOMA
     Route: 042
     Dates: start: 20180403
  10. DIFFU K [Concomitant]
     Active Substance: POTASSIUM CHLORIDE
  11. FLUOROURACIL ACCORD [Suspect]
     Active Substance: FLUOROURACIL
     Indication: SQUAMOUS CELL CARCINOMA
     Route: 042
     Dates: start: 20180403
  12. PROPRANOLOL [Concomitant]
     Active Substance: PROPRANOLOL HYDROCHLORIDE
  13. KARDEGIC [Concomitant]
     Active Substance: ASPIRIN DL-LYSINE

REACTIONS (4)
  - Acute kidney injury [Recovering/Resolving]
  - Enteritis [Recovering/Resolving]
  - Diarrhoea [Recovering/Resolving]
  - Hypotension [Recovering/Resolving]

NARRATIVE: CASE EVENT DATE: 20180411
